FAERS Safety Report 13277704 (Version 1)
Quarter: 2017Q1

REPORT INFORMATION
  Report Type: Spontaneous
  Country: US (occurrence: US)
  Receive Date: 20170228
  Receipt Date: 20170228
  Transmission Date: 20170428
  Serious: No
  Sender: FDA-Public Use
  Company Number: US-PERRIGO-16US015079

PATIENT
  Age: 81 Year
  Sex: Female
  Weight: 67.12 kg

DRUGS (3)
  1. CICLOPIROX. [Suspect]
     Active Substance: CICLOPIROX
     Indication: ONYCHOMYCOSIS
     Dosage: 1/2 PEA SIZE AMOUNT, BID
     Route: 061
     Dates: start: 20160302, end: 20160328
  2. CICLOPIROX. [Suspect]
     Active Substance: CICLOPIROX
     Indication: WRONG DRUG ADMINISTERED
     Dosage: UNKNOWN AMOUNT, QD
     Route: 061
     Dates: start: 20160328, end: 20160409
  3. CALCIPOTRIENE. [Concomitant]
     Active Substance: CALCIPOTRIENE
     Indication: ECZEMA
     Dosage: UNK
     Route: 061

REACTIONS (6)
  - Application site pain [Not Recovered/Not Resolved]
  - Application site pruritus [Not Recovered/Not Resolved]
  - Application site vesicles [Not Recovered/Not Resolved]
  - Application site erythema [Not Recovered/Not Resolved]
  - Wrong drug administered [Recovered/Resolved]
  - Eczema [Not Recovered/Not Resolved]

NARRATIVE: CASE EVENT DATE: 20160328
